FAERS Safety Report 14503813 (Version 1)
Quarter: 2018Q1

REPORT INFORMATION
  Report Type: Spontaneous
  Country: US (occurrence: US)
  Receive Date: 20180208
  Receipt Date: 20180208
  Transmission Date: 20180509
  Serious: Yes (Hospitalization)
  Sender: FDA-Public Use
  Company Number: US-JNJFOC-20180116228

PATIENT
  Sex: Male

DRUGS (12)
  1. SULFAMETHOXAZOLE [Concomitant]
     Active Substance: SULFAMETHOXAZOLE
  2. VALACYCLOVIR [Concomitant]
     Active Substance: VALACYCLOVIR HYDROCHLORIDE
  3. ALDACTONE [Concomitant]
     Active Substance: SPIRONOLACTONE
  4. PRINIVIL [Concomitant]
     Active Substance: LISINOPRIL
  5. ELIQUIS [Concomitant]
     Active Substance: APIXABAN
  6. ATORVASTATIN [Concomitant]
     Active Substance: ATORVASTATIN
  7. CARVEDILOL. [Concomitant]
     Active Substance: CARVEDILOL
  8. IMBRUVICA [Suspect]
     Active Substance: IBRUTINIB
     Indication: CHRONIC LYMPHOCYTIC LEUKAEMIA
     Route: 048
     Dates: start: 20160423
  9. VALSARTAN. [Concomitant]
     Active Substance: VALSARTAN
  10. LASIX [Concomitant]
     Active Substance: FUROSEMIDE
  11. LANTUS [Concomitant]
     Active Substance: INSULIN GLARGINE
  12. CEFOXITIN [Concomitant]
     Active Substance: CEFOXITIN SODIUM

REACTIONS (2)
  - Influenza [Unknown]
  - Localised infection [Unknown]
